FAERS Safety Report 12304580 (Version 5)
Quarter: 2016Q4

REPORT INFORMATION
  Report Type: Report from Study
  Country: JP (occurrence: JP)
  Receive Date: 20160426
  Receipt Date: 20161222
  Transmission Date: 20170207
  Serious: Yes (Hospitalization, Other)
  Sender: FDA-Public Use
  Company Number: PHJP2016JP009585

PATIENT
  Age: 70 Year
  Sex: Male

DRUGS (7)
  1. FARYDAK [Suspect]
     Active Substance: PANOBINOSTAT
     Dosage: 20 MG, QD
     Route: 048
     Dates: start: 20160418, end: 20160508
  2. FARYDAK [Suspect]
     Active Substance: PANOBINOSTAT
     Dosage: 15 MG, QD
     Route: 048
     Dates: start: 20160512, end: 20160601
  3. DEXAMETHASONE. [Suspect]
     Active Substance: DEXAMETHASONE
     Indication: PLASMA CELL MYELOMA
     Dosage: 20 MG, UNK
     Route: 048
     Dates: start: 20160402, end: 20160508
  4. FARYDAK [Suspect]
     Active Substance: PANOBINOSTAT
     Indication: PLASMA CELL MYELOMA
     Dosage: 20 MG, QD
     Route: 048
     Dates: start: 20160402, end: 20160417
  5. VELCADE [Suspect]
     Active Substance: BORTEZOMIB
     Dosage: 1.0 MG/M2, QW
     Route: 058
     Dates: start: 20160512, end: 20160601
  6. VELCADE [Suspect]
     Active Substance: BORTEZOMIB
     Indication: PLASMA CELL MYELOMA
     Dosage: 1.0 MG/M2, QW2
     Route: 058
     Dates: start: 20160402, end: 20160508
  7. DEXAMETHASONE. [Suspect]
     Active Substance: DEXAMETHASONE
     Dosage: 20 MG, UNK
     Route: 048
     Dates: start: 20160512, end: 20160601

REACTIONS (12)
  - Diarrhoea [Recovering/Resolving]
  - Platelet count decreased [Recovering/Resolving]
  - White blood cell count decreased [Unknown]
  - Malignant neoplasm progression [Unknown]
  - Nausea [Recovered/Resolved]
  - Blood creatinine increased [Recovering/Resolving]
  - Blood lactate dehydrogenase increased [Unknown]
  - Aspartate aminotransferase increased [Recovering/Resolving]
  - Pneumonia [Recovering/Resolving]
  - Plasma cell myeloma [Unknown]
  - Tumour lysis syndrome [Recovering/Resolving]
  - Vomiting [Recovered/Resolved]

NARRATIVE: CASE EVENT DATE: 20160405
